FAERS Safety Report 24389915 (Version 1)
Quarter: 2024Q4

REPORT INFORMATION
  Report Type: Spontaneous
  Country: FR (occurrence: FR)
  Receive Date: 20241003
  Receipt Date: 20241003
  Transmission Date: 20250114
  Serious: Yes (Hospitalization, Other)
  Sender: SANOFI AVENTIS
  Company Number: None

PATIENT
  Age: 24 Year
  Sex: Male

DRUGS (5)
  1. ZOLPIDEM TARTRATE [Suspect]
     Active Substance: ZOLPIDEM TARTRATE
     Dosage: 5 DF, QD
     Route: 048
     Dates: start: 202301
  2. ALPRAZOLAM [Suspect]
     Active Substance: ALPRAZOLAM
     Dosage: UNK (30 TABLETS FOR THE EPISODE)
     Route: 048
     Dates: start: 202403
  3. TRAMADOL HYDROCHLORIDE [Suspect]
     Active Substance: TRAMADOL HYDROCHLORIDE
     Dosage: UNK (750 MG/DAY, 1500 MG FOR THE EPISODE)
     Route: 048
     Dates: start: 202111
  4. MORPHINE [Suspect]
     Active Substance: MORPHINE
     Dosage: 50 MG, QD
     Route: 030
     Dates: start: 2018
  5. KETAMINE [Suspect]
     Active Substance: KETAMINE
     Dosage: 400 MG, QD
     Dates: start: 202401

REACTIONS (4)
  - Dissociative disorder [Recovered/Resolved]
  - Withdrawal syndrome [Recovered/Resolved]
  - Toxicity to various agents [Recovered/Resolved]
  - Drug dependence [Not Recovered/Not Resolved]

NARRATIVE: CASE EVENT DATE: 20240727
